FAERS Safety Report 22234852 (Version 6)
Quarter: 2023Q4

REPORT INFORMATION
  Report Type: Report from Study
  Country: CO (occurrence: CO)
  Receive Date: 20230420
  Receipt Date: 20231220
  Transmission Date: 20240109
  Serious: Yes (Other)
  Sender: FDA-Public Use
  Company Number: CO-JNJFOC-20230436105

PATIENT
  Age: 67 Year
  Sex: Female
  Weight: 58 kg

DRUGS (5)
  1. SIMPONI [Suspect]
     Active Substance: GOLIMUMAB
     Indication: Ankylosing spondylitis
     Route: 058
     Dates: start: 20150327, end: 20230305
  2. DOLEX [PARACETAMOL] [Concomitant]
  3. CIPROFLOXACIN [Concomitant]
     Active Substance: CIPROFLOXACIN
  4. PREGABALIN [Concomitant]
     Active Substance: PREGABALIN
  5. FLUIMUCIL [Concomitant]
     Active Substance: ACETYLCYSTEINE

REACTIONS (6)
  - Renal impairment [Not Recovered/Not Resolved]
  - Arthralgia [Not Recovered/Not Resolved]
  - Ear infection [Not Recovered/Not Resolved]
  - Influenza [Not Recovered/Not Resolved]
  - Therapeutic response decreased [Unknown]
  - Product dose omission issue [Unknown]

NARRATIVE: CASE EVENT DATE: 20230101
